FAERS Safety Report 11348841 (Version 4)
Quarter: 2015Q3

REPORT INFORMATION
  Report Type: Report from Study
  Country: CA (occurrence: CA)
  Receive Date: 20150806
  Receipt Date: 20150913
  Transmission Date: 20151125
  Serious: Yes (Other)
  Sender: FDA-Public Use
  Company Number: CA-AMGEN-CANSP2015077001

PATIENT
  Age: 62 Year
  Sex: Female
  Weight: 81.18 kg

DRUGS (6)
  1. ENBREL [Suspect]
     Active Substance: ETANERCEPT
     Dosage: UNK
     Route: 065
  2. ENBREL [Suspect]
     Active Substance: ETANERCEPT
     Indication: RHEUMATOID ARTHRITIS
     Dosage: 50 MG, QWK
     Route: 065
     Dates: start: 2000
  3. PREDNISONE. [Concomitant]
     Active Substance: PREDNISONE
     Dosage: 3 MG, UNK
  4. APO-HYDROXYQUINE [Concomitant]
     Dosage: UNK
  5. BABY ASPIRIN [Concomitant]
     Active Substance: ASPIRIN
     Dosage: UNK
  6. PIROXICAM. [Concomitant]
     Active Substance: PIROXICAM
     Dosage: UNK

REACTIONS (13)
  - Chills [Unknown]
  - Needle issue [Recovered/Resolved]
  - Therapeutic product ineffective [Recovered/Resolved]
  - Peripheral swelling [Unknown]
  - Gait disturbance [Unknown]
  - Pyrexia [Unknown]
  - Pain [Unknown]
  - Musculoskeletal disorder [Recovered/Resolved]
  - Viral upper respiratory tract infection [Recovered/Resolved]
  - Abasia [Recovered/Resolved]
  - Nausea [Unknown]
  - Bedridden [Recovered/Resolved]
  - Headache [Unknown]

NARRATIVE: CASE EVENT DATE: 20150419
